FAERS Safety Report 22143367 (Version 4)
Quarter: 2025Q2

REPORT INFORMATION
  Report Type: Report from Study
  Country: CA (occurrence: CA)
  Receive Date: 20230327
  Receipt Date: 20250428
  Transmission Date: 20250717
  Serious: Yes (Hospitalization)
  Sender: TAKEDA
  Company Number: CA-TAKEDA-2023TUS029907

PATIENT
  Sex: Male

DRUGS (22)
  1. VEDOLIZUMAB [Suspect]
     Active Substance: VEDOLIZUMAB
     Indication: Crohn^s disease
  2. VEDOLIZUMAB [Suspect]
     Active Substance: VEDOLIZUMAB
     Dosage: 300 MILLIGRAM, Q4WEEKS
     Dates: start: 20200319
  3. VEDOLIZUMAB [Suspect]
     Active Substance: VEDOLIZUMAB
     Dosage: 300 MILLIGRAM, Q4WEEKS
  4. VEDOLIZUMAB [Suspect]
     Active Substance: VEDOLIZUMAB
     Dosage: 300 MILLIGRAM, Q4WEEKS
  5. VEDOLIZUMAB [Suspect]
     Active Substance: VEDOLIZUMAB
     Dosage: 300 MILLIGRAM, Q4WEEKS
  6. CODEINE [Concomitant]
     Active Substance: CODEINE
     Dosage: 60 MILLIGRAM, QD
  7. LORAZEPAM [Concomitant]
     Active Substance: LORAZEPAM
  8. MORPHINE SULFATE [Concomitant]
     Active Substance: MORPHINE SULFATE
  9. MORPHINE [Concomitant]
     Active Substance: MORPHINE
  10. PAROXETINE [Concomitant]
     Active Substance: PAROXETINE
  11. TRAZODONE [Concomitant]
     Active Substance: TRAZODONE HYDROCHLORIDE
  12. PANTOPRAZOLE [Concomitant]
     Active Substance: PANTOPRAZOLE
  13. VIMOVO [Concomitant]
     Active Substance: ESOMEPRAZOLE MAGNESIUM\NAPROXEN
  14. CEPHALEXIN [Concomitant]
     Active Substance: CEPHALEXIN
  15. DULOXETINE [Concomitant]
     Active Substance: DULOXETINE
  16. TAMSULOSIN [Concomitant]
     Active Substance: TAMSULOSIN
  17. RABEPRAZOLE [Concomitant]
     Active Substance: RABEPRAZOLE
  18. GABAPENTIN [Concomitant]
     Active Substance: GABAPENTIN
  19. TIZANIDINE [Concomitant]
     Active Substance: TIZANIDINE
  20. FUROSEMIDE [Concomitant]
     Active Substance: FUROSEMIDE
  21. BACLOFEN [Concomitant]
     Active Substance: BACLOFEN
  22. ACETAMINOPHEN [Concomitant]
     Active Substance: ACETAMINOPHEN

REACTIONS (3)
  - Intervertebral disc protrusion [Recovered/Resolved]
  - Arthralgia [Recovering/Resolving]
  - Arthritis [Unknown]
